FAERS Safety Report 14151688 (Version 1)
Quarter: 2017Q4

REPORT INFORMATION
  Report Type: Spontaneous
  Country: US (occurrence: US)
  Receive Date: 20171102
  Receipt Date: 20171102
  Transmission Date: 20180321
  Serious: No
  Sender: FDA-Public Use
  Company Number: US-MIKART, INC.-2033030

PATIENT
  Age: 67 Year
  Sex: Female

DRUGS (8)
  1. CHLORZOXAZONE. [Suspect]
     Active Substance: CHLORZOXAZONE
     Indication: INSOMNIA
     Route: 048
     Dates: start: 20170928, end: 20170930
  2. METOPROLOL. [Concomitant]
     Active Substance: METOPROLOL
  3. CHLORZOXAZONE. [Suspect]
     Active Substance: CHLORZOXAZONE
     Indication: HEADACHE
     Route: 048
     Dates: start: 20170928, end: 20170930
  4. METOCLOPRAMIDE. [Concomitant]
     Active Substance: METOCLOPRAMIDE
  5. MODAFINIL. [Concomitant]
     Active Substance: MODAFINIL
  6. VIMPAT [Concomitant]
     Active Substance: LACOSAMIDE
  7. ROSUVASTATIN. [Concomitant]
     Active Substance: ROSUVASTATIN
  8. OMEPRAZOLE. [Concomitant]
     Active Substance: OMEPRAZOLE

REACTIONS (1)
  - Urticaria [Recovering/Resolving]

NARRATIVE: CASE EVENT DATE: 20170928
